FAERS Safety Report 9472822 (Version 1)
Quarter: 2013Q3

REPORT INFORMATION
  Report Type: Spontaneous
  Country: FR (occurrence: FR)
  Receive Date: 20130823
  Receipt Date: 20130823
  Transmission Date: 20140515
  Serious: Yes (Life-Threatening)
  Sender: FDA-Public Use
  Company Number: PHHY2013FR089901

PATIENT
  Sex: Male

DRUGS (2)
  1. VOLTARENE LP [Suspect]
     Dosage: 75 MG, BID
     Route: 048
     Dates: start: 20130721, end: 20130723
  2. PARACETAMOL [Suspect]
     Dosage: UNK UKN, UNK
     Route: 048
     Dates: start: 20130721, end: 20130723

REACTIONS (6)
  - Dermo-hypodermitis [Recovering/Resolving]
  - Septic shock [Recovering/Resolving]
  - Multi-organ failure [Recovering/Resolving]
  - Hepatic failure [Unknown]
  - Tachypnoea [Unknown]
  - Oxygen saturation decreased [Unknown]
